FAERS Safety Report 8163143-5 (Version None)
Quarter: 2012Q1

REPORT INFORMATION
  Report Type: 
  Country: None (occurrence: None)
  Receive Date: 20120224
  Receipt Date: 20110825
  Transmission Date: 20120608
  Serious: No
  Sender: FDA-Public Use
  Company Number: US-PFIZER INC-K201100999

PATIENT
  Sex: Male

DRUGS (13)
  1. FLECTOR [Suspect]
     Dosage: UNK PATCH, UNK
     Route: 061
  2. HUMALOG [Concomitant]
     Dosage: UNK
  3. TOPIRAMATE [Concomitant]
     Dosage: UNK
  4. METOPROLOL [Concomitant]
     Dosage: UNK
  5. PREDNISONE [Concomitant]
     Dosage: UNK
  6. NEORAL [Concomitant]
     Dosage: UNK
  7. CADUET [Concomitant]
     Dosage: UNK
  8. HYDROCHLOROTHIAZIDE [Concomitant]
     Dosage: UNK
  9. LISINOPRIL [Concomitant]
     Dosage: UNK
  10. CILOSTAZOL [Concomitant]
     Dosage: UNK
  11. ALLOPURINOL [Concomitant]
     Dosage: UNK
  12. NEXIUM [Concomitant]
     Dosage: UNK
  13. MYFORTIC [Concomitant]
     Dosage: UNK

REACTIONS (1)
  - BLOOD GLUCOSE INCREASED [None]
